FAERS Safety Report 13904033 (Version 1)
Quarter: 2017Q3

REPORT INFORMATION
  Report Type: Spontaneous
  Country: NL (occurrence: NL)
  Receive Date: 20170825
  Receipt Date: 20170825
  Transmission Date: 20171127
  Serious: Yes (Hospitalization)
  Sender: FDA-Public Use
  Company Number: NL-ASTRAZENECA-2017SE86028

PATIENT
  Age: 42 Year
  Sex: Female
  Weight: 64 kg

DRUGS (2)
  1. VENTOLIN [Suspect]
     Active Substance: ALBUTEROL SULFATE
     Indication: ASTHMA EXERCISE INDUCED
     Dosage: 2.0DF UNKNOWN
     Route: 055
     Dates: start: 200903, end: 200903
  2. SYMBICORT [Suspect]
     Active Substance: BUDESONIDE\FORMOTEROL FUMARATE DIHYDRATE
     Indication: ASTHMA EXERCISE INDUCED
     Dosage: 100/6 MCG DOSES , TWO DOSAGE FORM, UNKNOWN UNKNOWN
     Route: 055
     Dates: start: 200902, end: 200902

REACTIONS (8)
  - Bronchospasm [Unknown]
  - Arrhythmia [Unknown]
  - Hypertonia [Unknown]
  - Dizziness [Unknown]
  - Tremor [Unknown]
  - Muscle spasms [Unknown]
  - Blood pressure decreased [Unknown]
  - Chest pain [Unknown]

NARRATIVE: CASE EVENT DATE: 2009
